FAERS Safety Report 8361702-8 (Version None)
Quarter: 2012Q2

REPORT INFORMATION
  Report Type: 
  Country: None (occurrence: None)
  Receive Date: 20120515
  Receipt Date: 20120511
  Transmission Date: 20120825
  Serious: Yes (Hospitalization)
  Sender: FDA-Public Use
  Company Number: PH-B.I. PHARMACEUTICALS,INC./RIDGEFIELD-2012-CS-00662RP

PATIENT
  Age: 50 Year
  Sex: Female

DRUGS (1)
  1. TWYNSTA [Suspect]
     Indication: HYPERTENSION
     Dosage: 80MG/10MG TABLET OD
     Route: 048
     Dates: start: 20110101, end: 20120509

REACTIONS (2)
  - VOMITING [None]
  - OVERDOSE [None]
